FAERS Safety Report 8584432-6 (Version None)
Quarter: 2012Q3

REPORT INFORMATION
  Report Type: 
  Country: None (occurrence: None)
  Receive Date: 20120810
  Receipt Date: 20120517
  Transmission Date: 20120928
  Serious: No
  Sender: FDA-Public Use
  Company Number: US-009507513-2012SP026946

PATIENT
  Sex: Female

DRUGS (1)
  1. NUVARING [Suspect]
     Indication: CONTRACEPTION
     Dosage: 0.120MG/0.05MG PER DAY
     Route: 067
     Dates: end: 20090701

REACTIONS (3)
  - INCORRECT DRUG ADMINISTRATION DURATION [None]
  - UNINTENDED PREGNANCY [None]
  - PREGNANCY WITH CONTRACEPTIVE DEVICE [None]
